FAERS Safety Report 5356767-1 (Version None)
Quarter: 2007Q2

REPORT INFORMATION
  Report Type: 
  Country: None (occurrence: None)
  Receive Date: 20070614
  Receipt Date: 20060712
  Transmission Date: 20071010
  Serious: No
  Sender: FDA-Public Use
  Company Number: US-ASTRAZENECA-2006UW14328

PATIENT
  Age: 82 Year
  Sex: Female
  Weight: 59.9 kg

DRUGS (6)
  1. ATACAND [Suspect]
     Indication: CARDIAC FAILURE CONGESTIVE
     Dosage: ATACAND 4 MG AT 6 PM LAST NIGHT (FROM 4 MG 30 COUNT BOTTLE)
     Route: 048
     Dates: start: 20060711
  2. COZAAR [Concomitant]
     Indication: CARDIAC FAILURE CONGESTIVE
     Route: 048
  3. DIGITECH [Concomitant]
     Route: 048
  4. LASIX [Concomitant]
     Route: 048
  5. TOPROL-XL [Concomitant]
     Route: 048
  6. THEOPHYLLINE [Concomitant]
     Indication: DYSPNOEA
     Dosage: QPM

REACTIONS (2)
  - DIZZINESS [None]
  - VISION BLURRED [None]
